FAERS Safety Report 10249997 (Version 2)
Quarter: 2014Q3

REPORT INFORMATION
  Report Type: Report from Study
  Country: US (occurrence: None)
  Receive Date: 20140618
  Receipt Date: 20140822
  Transmission Date: 20150326
  Serious: Yes (Life-Threatening)
  Sender: FDA-Public Use
  Company Number: 153271

PATIENT
  Age: 65 Year
  Sex: Male
  Weight: 85.28 kg

DRUGS (1)
  1. DANORUBICIN HCL [Suspect]
     Active Substance: DAUNORUBICIN HYDROCHLORIDE
     Indication: ACUTE MYELOID LEUKAEMIA
     Dosage: 120 MG, 1X/DAY 1-3, IV BOLUS
     Route: 040
     Dates: start: 20140503

REACTIONS (3)
  - Pneumonia [None]
  - Sepsis [None]
  - Rhinorrhoea [None]

NARRATIVE: CASE EVENT DATE: 20140505
